FAERS Safety Report 9379760 (Version 1)
Quarter: 2013Q2

REPORT INFORMATION
  Report Type: Spontaneous
  Country: TR (occurrence: None)
  Receive Date: 20130627
  Receipt Date: 20130627
  Transmission Date: 20140414
  Serious: Yes (Other)
  Sender: FDA-Public Use
  Company Number: 2013P1008795

PATIENT
  Age: 48 Year
  Sex: Female

DRUGS (6)
  1. PHENYTOIN [Suspect]
     Indication: PROPHYLAXIS
     Dates: start: 2012
  2. PHENYTOIN [Suspect]
     Indication: BRAIN TUMOUR OPERATION
     Dates: start: 2012
  3. CAPECITABINE [Suspect]
     Indication: BREAST CANCER METASTATIC
     Dates: start: 201208
  4. ANASTROZOLE [Concomitant]
  5. DEXAMETHASONE [Concomitant]
  6. LANSOPRAZOL [Concomitant]

REACTIONS (11)
  - Depressed level of consciousness [None]
  - Hallucination [None]
  - Speech disorder [None]
  - Incoherent [None]
  - Vision blurred [None]
  - Ataxia [None]
  - General physical health deterioration [None]
  - Dysarthria [None]
  - Disorientation [None]
  - Nystagmus [None]
  - Toxicity to various agents [None]
